FAERS Safety Report 9336705 (Version 2)
Quarter: 2013Q2

REPORT INFORMATION
  Report Type: Spontaneous
  Country: US (occurrence: US)
  Receive Date: 20130607
  Receipt Date: 20130624
  Transmission Date: 20140414
  Serious: Yes (Death, Hospitalization)
  Sender: FDA-Public Use
  Company Number: US-B.I. PHARMACEUTICALS,INC./RIDGEFIELD-2013-BI-15837BP

PATIENT
  Age: 67 Year
  Sex: Male
  Weight: 105 kg

DRUGS (7)
  1. SPIRIVA [Suspect]
     Indication: EMPHYSEMA
     Dosage: 18 MCG
     Route: 055
     Dates: start: 20130523
  2. MULTIVITAMIN WITH IRON [Concomitant]
     Dosage: STRENGTH: 1 TABLET; DAILY DOSE: 1 TABLET
     Route: 048
     Dates: start: 201303
  3. OXYCODONE [Concomitant]
     Indication: BACK PAIN
     Dosage: STRENGTH: 5 MG / 325 MG; DAILY DOSE: 20 MG / 1300 MG
     Route: 048
     Dates: start: 201204
  4. VITAMIN B-12 [Concomitant]
     Dosage: 1000 MCG
     Route: 048
     Dates: start: 201302
  5. METFORMIN [Concomitant]
     Indication: DIABETES MELLITUS
     Dosage: 2000 MG
     Route: 048
     Dates: start: 20130425
  6. FAMOTIDINE [Concomitant]
     Indication: GASTROOESOPHAGEAL REFLUX DISEASE
     Dosage: 20 MG
     Route: 048
     Dates: start: 201302
  7. CYCLOBENZAPRINE [Concomitant]
     Indication: BACK PAIN
     Dosage: 10 MG
     Route: 048
     Dates: start: 20130423

REACTIONS (5)
  - Death [Fatal]
  - Swelling [Not Recovered/Not Resolved]
  - Product quality issue [Recovered/Resolved]
  - Product quality issue [Recovered/Resolved]
  - Product quality issue [Recovered/Resolved]
